FAERS Safety Report 16579097 (Version 5)
Quarter: 2020Q3

REPORT INFORMATION
  Report Type: Report from Study
  Country: US (occurrence: US)
  Receive Date: 20190716
  Receipt Date: 20200710
  Transmission Date: 20201102
  Serious: Yes (Hospitalization)
  Sender: FDA-Public Use
  Company Number: US-TAKEDA-2019TUS043042

PATIENT
  Sex: Female

DRUGS (2)
  1. VEDOLIZUMAB [Suspect]
     Active Substance: VEDOLIZUMAB
     Dosage: 300 MILLIGRAM
     Route: 042
     Dates: start: 20191115
  2. VEDOLIZUMAB [Suspect]
     Active Substance: VEDOLIZUMAB
     Indication: COLITIS ULCERATIVE
     Dosage: UNK
     Route: 042
     Dates: start: 20190424

REACTIONS (18)
  - Illness [Not Recovered/Not Resolved]
  - Dysgeusia [Recovered/Resolved]
  - Thyrotoxic crisis [Recovered/Resolved]
  - Clostridium difficile infection [Recovered/Resolved]
  - Abdominal pain upper [Recovered/Resolved]
  - Diarrhoea [Recovered/Resolved]
  - Pyrexia [Recovered/Resolved]
  - Weight decreased [Recovered/Resolved]
  - Night sweats [Recovered/Resolved]
  - Asthenia [Recovered/Resolved]
  - Uterine dilation and curettage [Unknown]
  - Lethargy [Recovered/Resolved]
  - Nausea [Recovered/Resolved]
  - Haematochezia [Recovered/Resolved]
  - Decreased appetite [Recovered/Resolved]
  - Giardiasis [Recovered/Resolved]
  - Dizziness [Recovered/Resolved]
  - Pain in extremity [Not Recovered/Not Resolved]
